FAERS Safety Report 25824893 (Version 6)
Quarter: 2025Q4

REPORT INFORMATION
  Report Type: Spontaneous
  Country: EU (occurrence: EU)
  Receive Date: 20250919
  Receipt Date: 20251112
  Transmission Date: 20260117
  Serious: Yes (Death, Life-Threatening, Hospitalization, Other)
  Sender: AUROBINDO
  Company Number: EU-MLMSERVICE-20250905-PI634365-00275-1

PATIENT
  Age: 76 Year
  Sex: Male

DRUGS (15)
  1. GABAPENTIN [Suspect]
     Active Substance: GABAPENTIN
     Indication: Product used for unknown indication
     Dosage: 300 MILLIGRAM, 3 TIMES A DAY
     Route: 065
  2. ACETAMINOPHEN [Suspect]
     Active Substance: ACETAMINOPHEN
     Indication: Body temperature
     Dosage: UNK
     Route: 042
  3. RISPERIDONE [Suspect]
     Active Substance: RISPERIDONE
     Indication: Product used for unknown indication
     Dosage: UNK
     Route: 065
  4. DIAZEPAM [Suspect]
     Active Substance: DIAZEPAM
     Indication: Product used for unknown indication
     Dosage: 5 MILLIGRAM, ONCE A DAY
     Route: 065
  5. TRAZODONE [Suspect]
     Active Substance: TRAZODONE HYDROCHLORIDE
     Indication: Product used for unknown indication
     Dosage: 50 MILLIGRAM, ONCE A DAY
     Route: 065
  6. QUETIAPINE [Suspect]
     Active Substance: QUETIAPINE
     Indication: Product used for unknown indication
     Dosage: 25 MILLIGRAM, TWO TIMES A DAY
     Route: 065
     Dates: start: 202501
  7. QUETIAPINE [Suspect]
     Active Substance: QUETIAPINE
     Indication: Antipsychotic therapy
     Dosage: 50 MILLIGRAM, ONCE A DAY
     Route: 065
  8. METAMIZOLE [Suspect]
     Active Substance: METAMIZOLE
     Indication: Product used for unknown indication
     Dosage: UNK
     Route: 065
  9. DULOXETINE HYDROCHLORIDE [Suspect]
     Active Substance: DULOXETINE HYDROCHLORIDE
     Indication: Product used for unknown indication
     Dosage: 30 MILLIGRAM, ONCE A DAY
     Route: 065
  10. LORMETAZEPAM [Suspect]
     Active Substance: LORMETAZEPAM
     Indication: Product used for unknown indication
     Dosage: 2 MILLIGRAM, AT BED TIME
     Route: 065
  11. DANTROLENE [Concomitant]
     Active Substance: DANTROLENE
     Indication: Product used for unknown indication
     Dosage: 2 MILLIGRAM/KILOGRAM
     Route: 042
  12. DANTROLENE [Concomitant]
     Active Substance: DANTROLENE
     Dosage: 1 MILLIGRAM/KILOGRAM, FOUR TIMES/DAY
     Route: 065
  13. DANTROLENE [Concomitant]
     Active Substance: DANTROLENE
     Dosage: UNK
     Route: 065
  14. DULOXETINE [Concomitant]
     Active Substance: DULOXETINE
     Indication: Product used for unknown indication
     Dosage: UNK
     Route: 065
  15. BROMOCRIPTINE [Concomitant]
     Active Substance: BROMOCRIPTINE
     Indication: Product used for unknown indication
     Dosage: UNK
     Route: 065

REACTIONS (14)
  - Neuroleptic malignant syndrome [Fatal]
  - Cardiac arrest [Fatal]
  - Renal failure [Fatal]
  - Hypokalaemia [Fatal]
  - Hypoxia [Fatal]
  - Multi-organ disorder [Fatal]
  - Hypernatraemia [Fatal]
  - Hypocalcaemia [Fatal]
  - Haemodynamic instability [Fatal]
  - Drug interaction [Fatal]
  - Renal impairment [Fatal]
  - Circulatory collapse [Fatal]
  - Acute kidney injury [Fatal]
  - Mental disorder [Unknown]

NARRATIVE: CASE EVENT DATE: 20250101
